FAERS Safety Report 18036777 (Version 2)
Quarter: 2020Q4

REPORT INFORMATION
  Report Type: Spontaneous
  Country: US (occurrence: US)
  Receive Date: 20200717
  Receipt Date: 20201015
  Transmission Date: 20210113
  Serious: Yes (Other)
  Sender: FDA-Public Use
  Company Number: US-UCBSA-2020021825

PATIENT
  Sex: Male

DRUGS (1)
  1. BRIVIACT [Suspect]
     Active Substance: BRIVARACETAM
     Indication: EPILEPSY
     Dosage: 50 MG 1 TABLET AM AND 1.5 TABLET PM
     Dates: start: 202002, end: 2020

REACTIONS (8)
  - Wrong technique in product usage process [Unknown]
  - Myocardial infarction [Unknown]
  - Fall [Not Recovered/Not Resolved]
  - Seizure [Unknown]
  - Cardiac disorder [Unknown]
  - Therapy cessation [Unknown]
  - Product availability issue [Unknown]
  - Loss of consciousness [Unknown]

NARRATIVE: CASE EVENT DATE: 2020
